FAERS Safety Report 17196630 (Version 1)
Quarter: 2019Q4

REPORT INFORMATION
  Report Type: Spontaneous
  Country: US (occurrence: US)
  Receive Date: 20191224
  Receipt Date: 20191224
  Transmission Date: 20200122
  Serious: Yes (Disabling, Other)
  Sender: FDA-Public Use
  Company Number: US-PFIZER INC-2019394635

PATIENT
  Age: 60 Year
  Sex: Female

DRUGS (1)
  1. PRISTIQ EXTENDED-RELEASE [Suspect]
     Active Substance: DESVENLAFAXINE SUCCINATE
     Dosage: 100 MG, 1X/DAY (TAKE 2 TABS BY MOUTH AT BEDTIME)
     Route: 048
     Dates: start: 20190731

REACTIONS (4)
  - Bipolar I disorder [Unknown]
  - Anxiety [Unknown]
  - Attention deficit/hyperactivity disorder [Unknown]
  - Impaired work ability [Unknown]
